FAERS Safety Report 16239651 (Version 1)
Quarter: 2019Q2

REPORT INFORMATION
  Report Type: Spontaneous
  Country: US (occurrence: US)
  Receive Date: 20190425
  Receipt Date: 20190425
  Transmission Date: 20190711
  Serious: No
  Sender: FDA-Public Use
  Company Number: US-AMNEAL PHARMACEUTICALS-2018AMN00209

PATIENT
  Age: 70 Year
  Sex: Male
  Weight: 63.95 kg

DRUGS (1)
  1. SILDENAFIL. [Suspect]
     Active Substance: SILDENAFIL
     Indication: ERECTILE DYSFUNCTION
     Dosage: 5 TABLETS, 1X/DAY
     Route: 048

REACTIONS (1)
  - Drug ineffective [Unknown]
